FAERS Safety Report 5378107-4 (Version None)
Quarter: 2007Q3

REPORT INFORMATION
  Report Type: 
  Country: None (occurrence: None)
  Receive Date: 20070702
  Receipt Date: 20070702
  Transmission Date: 20080115
  Serious: Yes (Other)
  Sender: FDA-Public Use
  Company Number: None

PATIENT
  Sex: Female
  Weight: 107.9561 kg

DRUGS (2)
  1. SIMVASTATIN [Suspect]
     Indication: HYPERLIPIDAEMIA
     Dosage: 20MG 1DAILY PO
     Route: 048
     Dates: start: 20060416
  2. SIMVASTATIN [Suspect]
     Indication: HYPERLIPIDAEMIA
     Dosage: 20MG 1DAILY PO
     Route: 048
     Dates: start: 20070613

REACTIONS (2)
  - HEADACHE [None]
  - SIMILAR REACTION ON PREVIOUS EXPOSURE TO DRUG [None]
